FAERS Safety Report 19981144 (Version 1)
Quarter: 2021Q4

REPORT INFORMATION
  Report Type: Spontaneous
  Country: CN (occurrence: GB)
  Receive Date: 20211022
  Receipt Date: 20211022
  Transmission Date: 20220303
  Serious: Yes (Hospitalization, Other)
  Sender: FDA-Public Use
  Company Number: CN-TWI PHARMACEUTICAL, INC-2021SCTW000060

PATIENT

DRUGS (4)
  1. NIFEDIPINE [Interacting]
     Active Substance: NIFEDIPINE
     Indication: Hypertension
     Dosage: 30 MG, BID
     Route: 065
  2. VORICONAZOLE [Interacting]
     Active Substance: VORICONAZOLE
     Indication: Aspergillus infection
     Dosage: UNK
     Route: 048
  3. AROTINOLOL [Concomitant]
     Active Substance: AROTINOLOL
     Indication: Hypertension
     Dosage: 10 MG, QD
     Route: 065
  4. TERAZOSIN HYDROCHLORIDE [Concomitant]
     Active Substance: TERAZOSIN HYDROCHLORIDE
     Indication: Hypertension
     Dosage: 2 MG NIGHTLY
     Route: 065

REACTIONS (5)
  - Acute kidney injury [Unknown]
  - Hyperkalaemia [Recovered/Resolved]
  - Sinus arrest [Recovered/Resolved]
  - Drug interaction [Unknown]
  - Hypotension [Recovered/Resolved]
